FAERS Safety Report 24669714 (Version 2)
Quarter: 2024Q4

REPORT INFORMATION
  Report Type: Spontaneous
  Country: US (occurrence: US)
  Receive Date: 20241127
  Receipt Date: 20241207
  Transmission Date: 20250115
  Serious: No
  Sender: DAIICHI
  Company Number: US-DAIICHI SANKYO, INC.-DS-2024-110704-USAA

PATIENT
  Sex: Female

DRUGS (1)
  1. TURALIO [Suspect]
     Active Substance: PEXIDARTINIB HYDROCHLORIDE
     Indication: Giant cell tumour of tendon sheath
     Dosage: 250 MG, BID
     Route: 048
     Dates: start: 20241111

REACTIONS (3)
  - Dizziness [Recovered/Resolved]
  - Fall [Not Recovered/Not Resolved]
  - Treatment noncompliance [Unknown]
